FAERS Safety Report 15886121 (Version 4)
Quarter: 2019Q3

REPORT INFORMATION
  Report Type: Report from Study
  Country: US (occurrence: US)
  Receive Date: 20190129
  Receipt Date: 20190903
  Transmission Date: 20191004
  Serious: Yes (Life-Threatening, Hospitalization, Disabling, Other)
  Sender: FDA-Public Use
  Company Number: PHHY2019US018929

PATIENT
  Age: 46 Year
  Sex: Male
  Weight: 104 kg

DRUGS (3)
  1. GILENYA [Suspect]
     Active Substance: FINGOLIMOD HYDROCHLORIDE
     Dosage: 0.5 MG, QD
     Route: 048
     Dates: start: 20180919
  2. GILENYA [Suspect]
     Active Substance: FINGOLIMOD HYDROCHLORIDE
     Dosage: 0.5 MG, QD
     Route: 048
     Dates: start: 20181010
  3. GILENYA [Suspect]
     Active Substance: FINGOLIMOD HYDROCHLORIDE
     Indication: MULTIPLE SCLEROSIS
     Dosage: 0.5 MG, QD
     Route: 048
     Dates: start: 20160720, end: 20180831

REACTIONS (17)
  - Traumatic liver injury [Recovered/Resolved with Sequelae]
  - Vomiting [Recovered/Resolved]
  - Rib fracture [Recovered/Resolved]
  - Injury [Recovered/Resolved with Sequelae]
  - Acute kidney injury [Recovered/Resolved]
  - Anaemia [Recovered/Resolved with Sequelae]
  - Abdomen crushing [Recovered/Resolved with Sequelae]
  - Haemorrhage [Recovered/Resolved with Sequelae]
  - Coronary artery occlusion [Recovered/Resolved]
  - Acute myocardial infarction [Recovered/Resolved]
  - Pneumonia [Recovered/Resolved]
  - Nausea [Recovered/Resolved]
  - Staphylococcal infection [Recovered/Resolved]
  - Transaminases increased [Recovered/Resolved with Sequelae]
  - Decreased appetite [Unknown]
  - Traumatic renal injury [Recovered/Resolved with Sequelae]
  - Gastroenteritis viral [Unknown]

NARRATIVE: CASE EVENT DATE: 20180831
